FAERS Safety Report 5296730-2 (Version None)
Quarter: 2007Q2

REPORT INFORMATION
  Report Type: 
  Country: None (occurrence: None)
  Receive Date: 20070413
  Receipt Date: 20070402
  Transmission Date: 20071010
  Serious: Yes (Death, Life-Threatening)
  Sender: FDA-Public Use
  Company Number: FR-PFIZER INC-2007026662

PATIENT
  Age: 60 Year
  Sex: Female
  Weight: 72 kg

DRUGS (4)
  1. SOLU-MEDROL [Suspect]
     Route: 042
     Dates: start: 20060729, end: 20060731
  2. CYCLOPHOSPHAMIDE [Suspect]
     Route: 042
  3. VINCRISTINE [Suspect]
     Route: 042
  4. DOXORUBICIN HCL [Suspect]
     Route: 042

REACTIONS (4)
  - ABSCESS [None]
  - CONDITION AGGRAVATED [None]
  - FUNGAL INFECTION [None]
  - SEPSIS [None]
